FAERS Safety Report 14572804 (Version 1)
Quarter: 2018Q1

REPORT INFORMATION
  Report Type: Spontaneous
  Country: US (occurrence: US)
  Receive Date: 20180226
  Receipt Date: 20180226
  Transmission Date: 20180509
  Serious: No
  Sender: FDA-Public Use
  Company Number: US-MYLANLABS-2018M1007606

PATIENT
  Sex: Female
  Weight: 74 kg

DRUGS (2)
  1. LORAZEPAM. [Suspect]
     Active Substance: LORAZEPAM
     Indication: ANXIETY DISORDER
     Dosage: 1 MG, UNK
     Route: 048
  2. OMEPRAZOLE. [Suspect]
     Active Substance: OMEPRAZOLE
     Indication: GASTROOESOPHAGEAL REFLUX DISEASE
     Dosage: 20 MG, UNK
     Route: 048

REACTIONS (12)
  - Headache [Unknown]
  - Dyspnoea [Unknown]
  - Nervousness [Unknown]
  - Condition aggravated [Unknown]
  - Heart rate increased [Unknown]
  - PCO2 decreased [Unknown]
  - Adverse drug reaction [Unknown]
  - Flushing [Unknown]
  - Erythema [Unknown]
  - Chest pain [Unknown]
  - Dizziness [Unknown]
  - Tremor [Unknown]
